FAERS Safety Report 9392709 (Version 1)
Quarter: 2013Q3

REPORT INFORMATION
  Report Type: Spontaneous
  Country: US (occurrence: None)
  Receive Date: 20130708
  Receipt Date: 20130708
  Transmission Date: 20140515
  Serious: Yes (Other)
  Sender: FDA-Public Use
  Company Number: None

PATIENT
  Sex: Female

DRUGS (1)
  1. ENBREL 50MG [Suspect]
     Dosage: 50 MG ONCE WEEKLY SUB Q
     Route: 058
     Dates: start: 20130312

REACTIONS (2)
  - Swelling face [None]
  - Stomatitis [None]
